FAERS Safety Report 9436050 (Version 2)
Quarter: 2014Q1

REPORT INFORMATION
  Report Type: Spontaneous
  Country: US (occurrence: US)
  Receive Date: 20130801
  Receipt Date: 20140117
  Transmission Date: 20141002
  Serious: Yes (Hospitalization, Other)
  Sender: FDA-Public Use
  Company Number: US-B.I. PHARMACEUTICALS,INC./RIDGEFIELD-2013-BI-22601BP

PATIENT
  Sex: Male
  Weight: 158 kg

DRUGS (19)
  1. PRADAXA [Suspect]
     Indication: ATRIAL FIBRILLATION
     Dosage: 300 MG
     Route: 048
     Dates: start: 20110203, end: 201203
  2. ASPIRIN [Concomitant]
     Dosage: 81 MG
  3. VITAMIN D [Concomitant]
  4. IRON [Concomitant]
  5. HUMALOG [Concomitant]
     Indication: TYPE 1 DIABETES MELLITUS
  6. JANUVIA [Concomitant]
     Indication: TYPE 1 DIABETES MELLITUS
     Dosage: 50 MG
  7. GLYBURIDE [Concomitant]
     Indication: TYPE 1 DIABETES MELLITUS
     Dosage: 10 MG
     Route: 055
  8. ADVAIR [Concomitant]
  9. TOPROL XL [Concomitant]
     Dosage: 50 MG
  10. ALTACE [Concomitant]
     Dosage: 20 MG
  11. DIOVAN [Concomitant]
     Dosage: 80 MG
     Route: 048
  12. K-DUR [Concomitant]
     Dosage: 40 MEQ
     Route: 048
  13. ZOLOFT [Concomitant]
     Dosage: 100 MG
  14. ALLOPURINOL [Concomitant]
     Indication: GOUT
     Dosage: 300 MG
  15. COLACE [Concomitant]
     Dosage: 100 MG
  16. ZOFRAN [Concomitant]
     Dosage: 12 MG
     Route: 048
  17. LORTAB [Concomitant]
  18. NORVASC [Concomitant]
     Dosage: 5 MG
  19. DEMADEX [Concomitant]
     Dosage: 80 MG

REACTIONS (9)
  - Haematuria [Unknown]
  - Haemarthrosis [Unknown]
  - Staphylococcal infection [Unknown]
  - Bacteraemia [Unknown]
  - Arthritis bacterial [Unknown]
  - Anaemia [Unknown]
  - Renal failure acute [Unknown]
  - Gastrointestinal haemorrhage [Recovered/Resolved]
  - Coagulopathy [Unknown]
